FAERS Safety Report 8899172 (Version 1)
Quarter: 2012Q4

REPORT INFORMATION
  Report Type: 
  Country: US (occurrence: US)
  Receive Date: 20121109
  Receipt Date: 20121109
  Transmission Date: 20130627
  Serious: Yes (Other)
  Sender: FDA-Public Use
  Company Number: CHPA2012US023019

PATIENT
  Age: 71 Year
  Sex: Male

DRUGS (3)
  1. MAALOX ANTACID/ANTIGAS MAX QDTABS ASST [Suspect]
     Indication: GASTRIC DISORDER
     Dosage: Unk, Unk
     Route: 048
     Dates: start: 2011, end: 201208
  2. MAALOX ANTACID/ANTIGAS MAX LIQ UNKNOWN [Suspect]
     Indication: GASTRIC DISORDER
     Dosage: 1 tsp as needed
     Dates: start: 2011, end: 201208
  3. ORAL ANTIDIABETICS [Concomitant]
     Indication: DIABETES MELLITUS

REACTIONS (5)
  - Hernia [Recovered/Resolved]
  - Hyperkeratosis [Not Recovered/Not Resolved]
  - Ulcer [Recovered/Resolved]
  - Off label use [Unknown]
  - Viral infection [None]
